FAERS Safety Report 7521171-4 (Version None)
Quarter: 2011Q2

REPORT INFORMATION
  Report Type: 
  Country: None (occurrence: None)
  Receive Date: 20110524
  Receipt Date: 20110509
  Transmission Date: 20111010
  Serious: Yes (Other)
  Sender: FDA-Public Use
  Company Number: JPI-P-015025

PATIENT
  Age: 58 Year
  Sex: Male

DRUGS (1)
  1. XYREM [Suspect]
     Indication: INSOMNIA
     Dosage: ORAL
     Dates: start: 20101114

REACTIONS (2)
  - FALL [None]
  - TENDON RUPTURE [None]
